FAERS Safety Report 25602242 (Version 1)
Quarter: 2025Q3

REPORT INFORMATION
  Report Type: Spontaneous
  Country: US (occurrence: None)
  Receive Date: 20250724
  Receipt Date: 20250724
  Transmission Date: 20251021
  Serious: Yes (Hospitalization)
  Sender: FDA-CTU
  Company Number: None

PATIENT
  Age: 82 Year
  Sex: Female

DRUGS (2)
  1. DEVICE [Suspect]
     Active Substance: DEVICE
     Dosage: 20MCG DAILY
  2. TERIPARATIDE [Suspect]
     Active Substance: TERIPARATIDE

REACTIONS (4)
  - Post procedural complication [None]
  - Needle issue [None]
  - Product dose omission issue [None]
  - Drug dose omission by device [None]
